FAERS Safety Report 5296275-X (Version None)
Quarter: 2007Q2

REPORT INFORMATION
  Report Type: 
  Country: None (occurrence: None)
  Receive Date: 20070413
  Receipt Date: 20070402
  Transmission Date: 20071010
  Serious: Yes (Other)
  Sender: FDA-Public Use
  Company Number: PHEH2007US04014

PATIENT
  Sex: Male

DRUGS (1)
  1. ZELNORM [Suspect]

REACTIONS (3)
  - CARDIAC FAILURE CONGESTIVE [None]
  - HYPERTENSION [None]
  - THROMBOSIS [None]
